FAERS Safety Report 9538426 (Version 1)
Quarter: 2013Q3

REPORT INFORMATION
  Report Type: Spontaneous
  Country: US (occurrence: US)
  Receive Date: 20130920
  Receipt Date: 20130920
  Transmission Date: 20140515
  Serious: Yes (Death)
  Sender: FDA-Public Use
  Company Number: US-PFIZER INC-2013266948

PATIENT
  Age: 73 Year
  Sex: Male

DRUGS (1)
  1. XALKORI [Suspect]
     Indication: NON-SMALL CELL LUNG CANCER
     Dosage: 200 MG, ONCE A DAY
     Dates: start: 20130813, end: 20130905

REACTIONS (2)
  - Disease progression [Fatal]
  - Non-small cell lung cancer [Fatal]
